FAERS Safety Report 4831413-1 (Version None)
Quarter: 2005Q4

REPORT INFORMATION
  Report Type: 
  Country: None (occurrence: None)
  Receive Date: 20051114
  Receipt Date: 20051031
  Transmission Date: 20060501
  Serious: Yes (Death)
  Sender: FDA-Public Use
  Company Number: 11989

PATIENT
  Age: 75 Year
  Sex: Female

DRUGS (8)
  1. ASPIRIN [Suspect]
  2. GLYCERYL TRINITRATE [Suspect]
  3. FRUSEMIDE [Suspect]
  4. ZOTON [Suspect]
  5. LISINOPRIL [Suspect]
     Indication: HYPERTENSION
  6. ATENOLOL [Suspect]
  7. ATORVASTATIN CALCIUM [Suspect]
  8. NITROGLYCERIN [Concomitant]

REACTIONS (14)
  - ACUTE MYOCARDIAL INFARCTION [None]
  - AIRWAY COMPLICATION OF ANAESTHESIA [None]
  - COLON CANCER [None]
  - GASTROINTESTINAL HAEMORRHAGE [None]
  - LARYNGEAL OEDEMA [None]
  - LARYNGOSPASM [None]
  - LOWER RESPIRATORY TRACT INFECTION [None]
  - MYOCARDIAL INFARCTION [None]
  - NEUROMUSCULAR BLOCK PROLONGED [None]
  - OBSTRUCTIVE AIRWAYS DISORDER [None]
  - OVERDOSE [None]
  - POST PROCEDURAL HAEMORRHAGE [None]
  - PULMONARY OEDEMA [None]
  - STRIDOR [None]
